FAERS Safety Report 17934072 (Version 1)
Quarter: 2020Q2

REPORT INFORMATION
  Report Type: Spontaneous
  Country: CN (occurrence: CN)
  Receive Date: 20200623
  Receipt Date: 20200623
  Transmission Date: 20200714
  Serious: Yes (Other)
  Sender: FDA-Public Use
  Company Number: CN-ASTRAZENECA-2020SE78837

PATIENT
  Age: 53 Year
  Sex: Male

DRUGS (3)
  1. GEFITINIB. [Suspect]
     Active Substance: GEFITINIB
     Indication: LUNG NEOPLASM MALIGNANT
     Route: 048
     Dates: start: 201602
  2. OSIMERTINIB. [Suspect]
     Active Substance: OSIMERTINIB
     Indication: DISCOMFORT
     Route: 048
     Dates: start: 201709
  3. OSIMERTINIB. [Suspect]
     Active Substance: OSIMERTINIB
     Indication: LUNG NEOPLASM MALIGNANT
     Route: 048
     Dates: start: 201709

REACTIONS (7)
  - Myalgia [Unknown]
  - Discomfort [Unknown]
  - Pneumonia [Recovering/Resolving]
  - Diarrhoea [Unknown]
  - COVID-19 [Recovered/Resolved]
  - Malignant neoplasm progression [Unknown]
  - Lymphadenopathy [Unknown]

NARRATIVE: CASE EVENT DATE: 201709
